FAERS Safety Report 9112856 (Version 5)
Quarter: 2013Q4

REPORT INFORMATION
  Report Type: Spontaneous
  Country: US (occurrence: US)
  Receive Date: 20130211
  Receipt Date: 20131209
  Transmission Date: 20140711
  Serious: Yes (Hospitalization, Other)
  Sender: FDA-Public Use
  Company Number: US-009507513-1302USA003421

PATIENT
  Sex: Female
  Weight: 77.98 kg

DRUGS (2)
  1. NUVARING [Suspect]
     Indication: CONTRACEPTION
     Dosage: 1 DF, UNK
     Route: 067
     Dates: start: 20061206, end: 200810
  2. NUVARING [Suspect]
     Dosage: 1 DF, UNK
     Route: 067
     Dates: start: 20101222, end: 20120217

REACTIONS (34)
  - Renal vessel disorder [Unknown]
  - Pulmonary embolism [Unknown]
  - Inflammation [Unknown]
  - Flank pain [Recovered/Resolved]
  - Renal disorder [Unknown]
  - Deep vein thrombosis [Unknown]
  - Thrombosis [Unknown]
  - Dyspnoea exertional [Unknown]
  - Tachycardia [Unknown]
  - Seasonal allergy [Unknown]
  - Hepatitis viral [Unknown]
  - Humerus fracture [Unknown]
  - Scoliosis [Unknown]
  - Anogenital warts [Unknown]
  - Cervical dysplasia [Not Recovered/Not Resolved]
  - Procedural haemorrhage [Recovered/Resolved]
  - Weight increased [Unknown]
  - Fatigue [Unknown]
  - Oedema peripheral [Unknown]
  - Hypoaesthesia [Unknown]
  - Balance disorder [Unknown]
  - Rash [Unknown]
  - Asthenia [Unknown]
  - Colposcopy [Unknown]
  - Papilloma viral infection [Unknown]
  - Infectious mononucleosis [Unknown]
  - Diarrhoea [Unknown]
  - Vulvovaginal mycotic infection [Unknown]
  - Fallopian tube cyst [Unknown]
  - Road traffic accident [Unknown]
  - Breast discharge [Unknown]
  - Dyspepsia [Unknown]
  - Melanocytic naevus [Unknown]
  - Malignant melanoma [Unknown]
